FAERS Safety Report 24950201 (Version 3)
Quarter: 2025Q2

REPORT INFORMATION
  Report Type: Report from Study
  Country: US (occurrence: US)
  Receive Date: 20250210
  Receipt Date: 20250623
  Transmission Date: 20250716
  Serious: Yes (Other)
  Sender: ABBVIE
  Company Number: US-ABBVIE-6120784

PATIENT
  Age: 63 Year
  Sex: Male
  Weight: 100 kg

DRUGS (8)
  1. HUMIRA [Suspect]
     Active Substance: ADALIMUMAB
     Indication: Rheumatoid arthritis
     Route: 058
     Dates: start: 2021
  2. HUMIRA [Suspect]
     Active Substance: ADALIMUMAB
     Route: 058
     Dates: start: 20231010
  3. HUMIRA [Suspect]
     Active Substance: ADALIMUMAB
     Route: 058
  4. TRAZODONE [Concomitant]
     Active Substance: TRAZODONE HYDROCHLORIDE
     Indication: Sleep disorder
  5. LOSARTAN [Concomitant]
     Active Substance: LOSARTAN
     Indication: Blood pressure measurement
     Dosage: PILL
  6. ATORVASTATIN CALCIUM [Concomitant]
     Active Substance: ATORVASTATIN CALCIUM
     Indication: Blood cholesterol
     Dosage: PILL
  7. PREDNISONE [Concomitant]
     Active Substance: PREDNISONE
     Indication: Arthritis
     Dosage: PILL
  8. LEVOTHYROXINE [Concomitant]
     Active Substance: LEVOTHYROXINE
     Indication: Thyroid disorder
     Dosage: PILL

REACTIONS (6)
  - Pulmonary oedema [Unknown]
  - Arthralgia [Recovering/Resolving]
  - Influenza [Recovered/Resolved]
  - Secretion discharge [Not Recovered/Not Resolved]
  - Pulmonary congestion [Unknown]
  - Scar [Unknown]

NARRATIVE: CASE EVENT DATE: 20250101
